FAERS Safety Report 8220482-7 (Version None)
Quarter: 2012Q1

REPORT INFORMATION
  Report Type: 
  Country: None (occurrence: None)
  Receive Date: 20120320
  Receipt Date: 20120309
  Transmission Date: 20120608
  Serious: Yes (Hospitalization, Other)
  Sender: FDA-Public Use
  Company Number: US-BAYER-2011-079451

PATIENT
  Age: 33 Year
  Sex: Female
  Weight: 62.585 kg

DRUGS (1)
  1. YAZ [Suspect]
     Indication: PRODUCT USED FOR UNKNOWN INDICATION
     Dosage: UNK
     Dates: start: 20080701, end: 20090101

REACTIONS (9)
  - EMOTIONAL DISTRESS [None]
  - INJURY [None]
  - GENERAL PHYSICAL HEALTH DETERIORATION [None]
  - ANHEDONIA [None]
  - CHEST PAIN [None]
  - ATRIAL FIBRILLATION [None]
  - PAIN [None]
  - ANGINA PECTORIS [None]
  - ANXIETY [None]
